FAERS Safety Report 4922644-0 (Version None)
Quarter: 2006Q1

REPORT INFORMATION
  Report Type: 
  Country: None (occurrence: None)
  Receive Date: 20060223
  Receipt Date: 20060223
  Transmission Date: 20060701
  Serious: No
  Sender: FDA-Public Use
  Company Number: None

PATIENT
  Age: 68 Year
  Sex: Male

DRUGS (2)
  1. SILDENAFIL [Suspect]
     Dosage: 100 MG OTO PO
     Route: 048
  2. ASPIRIN [Suspect]
     Dosage: 162 MG QD PO
     Route: 048

REACTIONS (5)
  - CEREBRAL HAEMORRHAGE [None]
  - FACIAL PALSY [None]
  - HEADACHE [None]
  - HEMIPARESIS [None]
  - SPEECH DISORDER [None]
